FAERS Safety Report 10376868 (Version 1)
Quarter: 2014Q1

REPORT INFORMATION
  Report Type: Spontaneous
  Country: US (occurrence: None)
  Receive Date: 20140306
  Receipt Date: 20140306
  Transmission Date: 20141002
  Serious: Yes (Other)
  Sender: FDA-Public Use
  Company Number: 163-21880-13121729

PATIENT
  Age: 75 Year
  Sex: Male
  Weight: 90.72 kg

DRUGS (2)
  1. REVLIMID (LENALIDOMIDE) (CAPSULES) [Suspect]
     Indication: MYELODYSPLASTIC SYNDROME
     Route: 048
     Dates: start: 201209
  2. ASPIRIN [Concomitant]

REACTIONS (13)
  - Full blood count decreased [None]
  - Platelet disorder [None]
  - White blood cell disorder [None]
  - Insomnia [None]
  - Blood urine present [None]
  - Sinus congestion [None]
  - Nasopharyngitis [None]
  - Local swelling [None]
  - Diarrhoea [None]
  - Cough [None]
  - Muscle spasms [None]
  - Epistaxis [None]
  - Rash [None]
